FAERS Safety Report 5117740-1 (Version None)
Quarter: 2006Q3

REPORT INFORMATION
  Report Type: 
  Country: None (occurrence: None)
  Receive Date: 20060929
  Receipt Date: 20060907
  Transmission Date: 20061208
  Serious: Yes (Death)
  Sender: FDA-Public Use
  Company Number: CA-GLAXOSMITHKLINE-A0619422A

PATIENT
  Age: 74 Year
  Sex: Male

DRUGS (7)
  1. DIGIBIND [Suspect]
     Indication: DRUG USE FOR UNKNOWN INDICATION
     Route: 065
  2. DIGOXIN [Suspect]
     Indication: DRUG USE FOR UNKNOWN INDICATION
     Route: 065
  3. FENTANYL [Concomitant]
     Dosage: 75UG PER DAY
     Route: 050
  4. NITROGLYCERIN [Concomitant]
  5. SYMBICORT [Concomitant]
  6. LASIX [Concomitant]
  7. PIPERACILLIN AND TAZOBACTAM [Concomitant]
     Dosage: 2.25G THREE TIMES PER DAY

REACTIONS (6)
  - ATRIOVENTRICULAR BLOCK [None]
  - DEATH [None]
  - POOR QUALITY DRUG ADMINISTERED [None]
  - RENAL FAILURE [None]
  - THERAPEUTIC AGENT TOXICITY [None]
  - VENTRICULAR TACHYCARDIA [None]
